FAERS Safety Report 4959467-2 (Version None)
Quarter: 2006Q1

REPORT INFORMATION
  Report Type: 
  Country: None (occurrence: None)
  Receive Date: 20060331
  Receipt Date: 20050525
  Transmission Date: 20060701
  Serious: Yes (Hospitalization)
  Sender: FDA-Public Use
  Company Number: US-MERCK-0505USA03108

PATIENT
  Age: 84 Year
  Sex: Male
  Weight: 84 kg

DRUGS (1)
  1. VIOXX [Suspect]
     Indication: PAIN
     Route: 048
     Dates: start: 20000719, end: 20040601

REACTIONS (6)
  - ARTHRALGIA [None]
  - ATRIAL FLUTTER [None]
  - BACK PAIN [None]
  - DYSPNOEA [None]
  - ISCHAEMIC STROKE [None]
  - SWELLING [None]
